FAERS Safety Report 7940780 (Version 3)
Quarter: 2013Q1

REPORT INFORMATION
  Report Type: Spontaneous
  Country: US (occurrence: US)
  Receive Date: 20110511
  Receipt Date: 20130104
  Transmission Date: 20140127
  Serious: Yes (Other)
  Sender: FDA-Public Use
  Company Number: US-ASTRAZENECA-2011SE25610

PATIENT
  Age: 58 Year
  Sex: Male

DRUGS (5)
  1. NEXIUM [Suspect]
     Route: 048
  2. TOPROL XL [Suspect]
     Route: 048
  3. PRILOSEC [Suspect]
     Dosage: GENERIC
     Route: 048
  4. PRILOSEC OTC [Suspect]
     Route: 048
  5. LOSARTAN POTASSIUM W/HYDROCHLOROTHIAZIDE [Concomitant]
     Dosage: LOSARTAN POTASSIUM 50 MG PLUS HYDROCHLOROTHIAZIDE 25 MG

REACTIONS (7)
  - Cataract [Unknown]
  - Gastrooesophageal reflux disease [Unknown]
  - Malaise [Unknown]
  - Oesophageal pain [Unknown]
  - Barrett^s oesophagus [Unknown]
  - Drug dose omission [Unknown]
  - Drug ineffective [Unknown]
